FAERS Safety Report 4966586-3 (Version None)
Quarter: 2006Q2

REPORT INFORMATION
  Report Type: 
  Country: None (occurrence: None)
  Receive Date: 20060407
  Receipt Date: 20050823
  Transmission Date: 20061013
  Serious: Yes (Hospitalization, Other)
  Sender: FDA-Public Use
  Company Number: 200516334US

PATIENT
  Sex: Female
  Weight: 81.81 kg

DRUGS (1)
  1. KETEK [Suspect]
     Dosage: DOSE: 2 TABLETS
     Route: 048
     Dates: start: 20050317

REACTIONS (9)
  - ALANINE AMINOTRANSFERASE INCREASED [None]
  - ANOREXIA [None]
  - ASPARTATE AMINOTRANSFERASE INCREASED [None]
  - ASTHENIA [None]
  - BILIARY CIRRHOSIS [None]
  - BLOOD ALKALINE PHOSPHATASE INCREASED [None]
  - FATIGUE [None]
  - FIBROMYALGIA [None]
  - PAIN [None]
